FAERS Safety Report 6059501-5 (Version None)
Quarter: 2009Q1

REPORT INFORMATION
  Report Type: 
  Country: None (occurrence: None)
  Receive Date: 20090127
  Receipt Date: 20090127
  Transmission Date: 20090719
  Serious: Yes (Death)
  Sender: FDA-Public Use
  Company Number: None

PATIENT
  Sex: Male
  Weight: 108.8633 kg

DRUGS (1)
  1. LYRICA [Suspect]
     Indication: NEUROPATHY PERIPHERAL
     Dosage: 75MG BID PO
     Route: 048
     Dates: start: 20070701, end: 20080901

REACTIONS (3)
  - ASPHYXIA [None]
  - CARPAL TUNNEL SYNDROME [None]
  - COMPLETED SUICIDE [None]
